FAERS Safety Report 18725925 (Version 8)
Quarter: 2023Q2

REPORT INFORMATION
  Report Type: Report from Study
  Country: DK (occurrence: None)
  Receive Date: 20210111
  Receipt Date: 20230513
  Transmission Date: 20230721
  Serious: Yes (Hospitalization)
  Sender: FDA-Public Use
  Company Number: DK-ROCHE-2740510

PATIENT
  Age: 48 Year
  Sex: Male
  Weight: 92.5 kg

DRUGS (33)
  1. GLOFITAMAB [Suspect]
     Active Substance: GLOFITAMAB
     Indication: Follicular lymphoma
     Dosage: MOST RECENT DOSE (DOSE: 2.5 MG AND TOTAL VOLUME: 25 ML) PRIOR TO UPPER AIRWAY INFECTION 22/DEC/2020
     Route: 042
     Dates: start: 20201222
  2. RITUXIMAB [Suspect]
     Active Substance: RITUXIMAB
     Indication: Follicular lymphoma
     Dosage: ON 15/DEC/2020 AT 11:35 AM TO 1:10 PM, HE RECEIVED MOST RECENT DOSE PRIOR TO EVENTS 375 MG/M2 AND VO
     Route: 041
     Dates: start: 20201110
  3. CYCLOPHOSPHAMIDE [Suspect]
     Active Substance: CYCLOPHOSPHAMIDE
     Indication: Follicular lymphoma
     Dosage: ON 15/DEC/2020 AT 2:05 PM TO AT 2.25 PM, HE RECEIVED MOST RECENT DOSE 750 MG/M2 AND VOLUME 120 ML OF
     Route: 042
     Dates: start: 20201111
  4. DOXORUBICIN [Suspect]
     Active Substance: DOXORUBICIN
     Indication: Follicular lymphoma
     Dosage: ON 15/DEC/2020 AT 2:42 PM TO AT 2.55 PM, HE RECEIVED MOST RECENT DOSE 50 MG/M2 AND VOLUME 100 ML OF
     Route: 042
     Dates: start: 20201111
  5. VINCRISTINE [Suspect]
     Active Substance: VINCRISTINE
     Indication: Follicular lymphoma
     Dosage: ON 15/DEC/2020 AT 1:45 PM TO AT 1.50 PM, HE RECEIVED MOST RECENT DOSE 1.4 MG/M2 AND VOLUME 52 ML OF
     Route: 042
     Dates: start: 20201111
  6. PREDNISOLONE [Suspect]
     Active Substance: PREDNISOLONE
     Indication: Follicular lymphoma
     Dosage: ON 15/NOV/2020 AT 7.45 AM, HE RECEIVED MOST RECENT DOSE OF PREDNISOLONE PRIOR TO BOTH EVENTS?ON 19/D
     Route: 048
     Dates: start: 20201111
  7. METHYLPREDNISOLONE [Suspect]
     Active Substance: METHYLPREDNISOLONE
     Indication: Diffuse large B-cell lymphoma
     Dosage: ON 15/DEC/2020 AT 10.35 AM, HE RECEIVED MOST RECENT DOSE 80 MG OF METHYLPREDNISOLONE PRIOUR TO SAE.
     Route: 048
     Dates: start: 20201215
  8. ZOPICLONE [Concomitant]
     Active Substance: ZOPICLONE
     Indication: Insomnia
     Dates: start: 20201113, end: 20210817
  9. AZITHROMYCIN [Concomitant]
     Active Substance: AZITHROMYCIN
     Indication: Pain
     Dates: start: 20201117, end: 20201119
  10. CIPROFLOXACIN [Concomitant]
     Active Substance: CIPROFLOXACIN
     Indication: Pain
     Dates: start: 20201120, end: 20201129
  11. POLYETHYLENE GLYCOLS [Concomitant]
     Active Substance: POLYETHYLENE GLYCOLS
     Indication: Constipation
     Dates: start: 20201117
  12. DEXAMETHASONE [Concomitant]
     Active Substance: DEXAMETHASONE
     Route: 042
     Dates: start: 20201222, end: 20201222
  13. DEXAMETHASONE [Concomitant]
     Active Substance: DEXAMETHASONE
     Route: 042
     Dates: start: 20201228
  14. ACETAMINOPHEN [Concomitant]
     Active Substance: ACETAMINOPHEN
     Route: 048
     Dates: start: 20201215, end: 20201215
  15. ACETAMINOPHEN [Concomitant]
     Active Substance: ACETAMINOPHEN
     Route: 048
     Dates: start: 20201222, end: 20201222
  16. ACETAMINOPHEN [Concomitant]
     Active Substance: ACETAMINOPHEN
     Route: 048
     Dates: start: 20201228
  17. CETIRIZINE HYDROCHLORIDE [Concomitant]
     Active Substance: CETIRIZINE HYDROCHLORIDE
     Route: 048
     Dates: start: 20201215, end: 20201215
  18. CETIRIZINE HYDROCHLORIDE [Concomitant]
     Active Substance: CETIRIZINE HYDROCHLORIDE
     Route: 048
     Dates: start: 20201222, end: 20201222
  19. CETIRIZINE HYDROCHLORIDE [Concomitant]
     Active Substance: CETIRIZINE HYDROCHLORIDE
     Route: 048
     Dates: start: 20201228
  20. CLOPIDOGREL [Concomitant]
     Active Substance: CLOPIDOGREL BISULFATE
     Dates: start: 20200930
  21. ASPIRIN [Concomitant]
     Active Substance: ASPIRIN
     Dates: start: 20200711
  22. AMIODARONE [Concomitant]
     Active Substance: AMIODARONE
     Indication: Arrhythmia
     Dates: start: 20200718
  23. METOPROLOL SUCCINATE [Concomitant]
     Active Substance: METOPROLOL SUCCINATE
     Dates: start: 20200909
  24. ATORVASTATIN [Concomitant]
     Active Substance: ATORVASTATIN
     Indication: Blood cholesterol increased
     Dates: start: 20200714
  25. ACYCLOVIR [Concomitant]
     Active Substance: ACYCLOVIR
     Dates: start: 20201111
  26. ONDANSETRON [Concomitant]
     Active Substance: ONDANSETRON
     Dates: start: 20201111
  27. ONDANSETRON [Concomitant]
     Active Substance: ONDANSETRON
     Route: 048
     Dates: start: 20201215, end: 20201215
  28. DOMPERIDONE [Concomitant]
     Active Substance: DOMPERIDONE
     Dates: start: 20201111
  29. PEGFILGRASTIM [Concomitant]
     Active Substance: PEGFILGRASTIM
     Dates: start: 20201114
  30. PEGFILGRASTIM [Concomitant]
     Active Substance: PEGFILGRASTIM
     Dates: start: 20201218, end: 20201218
  31. DIAZEPAM [Concomitant]
     Active Substance: DIAZEPAM
     Indication: Insomnia
     Dates: start: 20201231, end: 20201231
  32. TINZAPARIN [Concomitant]
     Active Substance: TINZAPARIN
     Dates: start: 20210102
  33. SODIUM PICOSULFATE [Concomitant]
     Active Substance: SODIUM PICOSULFATE
     Indication: Constipation prophylaxis
     Dates: start: 2015

REACTIONS (2)
  - Upper respiratory tract infection [Recovered/Resolved]
  - COVID-19 [Recovered/Resolved]

NARRATIVE: CASE EVENT DATE: 20201219
